FAERS Safety Report 7288588-7 (Version None)
Quarter: 2011Q1

REPORT INFORMATION
  Report Type: 
  Country: None (occurrence: None)
  Receive Date: 20110211
  Receipt Date: 20110201
  Transmission Date: 20110831
  Serious: Yes (Hospitalization, Disabling, Other)
  Sender: FDA-Public Use
  Company Number: US-ELI_LILLY_AND_COMPANY-US201011006515

PATIENT
  Sex: Male

DRUGS (17)
  1. ZYPREXA [Suspect]
     Dosage: 15 MG, 2/D
  2. CYMBALTA [Suspect]
     Dosage: UNK, UNK
  3. DEPAKOTE [Concomitant]
     Indication: SCHIZOPHRENIA
     Dosage: 250 MG, 2/D
  4. CYMBALTA [Suspect]
     Indication: HEADACHE
     Dosage: 60 MG, DAILY (1/D)
  5. DEPAKOTE [Concomitant]
     Dosage: 1500 MG, DAILY (1/D)
  6. XANAX [Concomitant]
  7. NAPROSYN [Concomitant]
  8. TRAZODONE [Concomitant]
     Dates: end: 20081218
  9. KLONOPIN [Concomitant]
  10. MARIJUANA [Concomitant]
     Indication: PAIN
  11. ZYPREXA [Suspect]
     Dosage: 5 MG, DAILY (1/D)
     Dates: start: 20080601
  12. NADOL [Concomitant]
  13. PHENERGAN [Concomitant]
     Indication: NAUSEA
  14. ZYPREXA [Suspect]
     Indication: SCHIZOPHRENIA
     Dosage: 30 MG, 3/D
     Dates: start: 20060101
  15. ZYPREXA [Suspect]
     Dosage: 15 MG, 2/D
     Dates: start: 20080901, end: 20081218
  16. ZYPREXA [Suspect]
     Dosage: 20 MG, DAILY (1/D)
     Dates: end: 20080901
  17. ZYPREXA [Suspect]
     Indication: SCHIZOPHRENIA
     Dosage: 15 MG, ONE TIME DOSE
     Route: 030
     Dates: start: 20070101, end: 20070101

REACTIONS (20)
  - FALL [None]
  - DISABILITY [None]
  - NERVOUS SYSTEM DISORDER [None]
  - HYPOAESTHESIA [None]
  - PHOTOPSIA [None]
  - CONVULSION [None]
  - HEADACHE [None]
  - ARTHRITIS [None]
  - PAIN IN EXTREMITY [None]
  - HEART RATE DECREASED [None]
  - AGITATION [None]
  - FEELING DRUNK [None]
  - OVERDOSE [None]
  - DIPLOPIA [None]
  - BRAIN OPERATION [None]
  - OFF LABEL USE [None]
  - HEAD INJURY [None]
  - AGGRESSION [None]
  - AMNESIA [None]
  - VISION BLURRED [None]
